FAERS Safety Report 5202608-2 (Version None)
Quarter: 2007Q1

REPORT INFORMATION
  Report Type: 
  Country: None (occurrence: None)
  Receive Date: 20070109
  Receipt Date: 20061228
  Transmission Date: 20070707
  Serious: Yes (Hospitalization)
  Sender: FDA-Public Use
  Company Number: PT-PFIZER INC-2006147948

PATIENT
  Sex: Female
  Weight: 114 kg

DRUGS (11)
  1. SOMAVERT [Suspect]
     Indication: ACROMEGALY
     Route: 058
     Dates: start: 20061129, end: 20061129
  2. METFORMIN HCL [Concomitant]
     Route: 048
  3. OCTREOTIDE ACETATE [Concomitant]
  4. PARLODEL [Concomitant]
  5. LETTER [Concomitant]
  6. CINCOFARM [Concomitant]
     Route: 048
  7. HYPERIUM [Concomitant]
     Indication: HYPERTENSION
     Route: 048
  8. FLUDEX [Concomitant]
     Indication: HYPERTENSION
     Route: 048
     Dates: start: 19980101
  9. AMITRIPTYLINE HCL [Concomitant]
     Indication: DEPRESSION
     Route: 048
     Dates: start: 19970911
  10. LEVOTHYROXINE SODIUM [Concomitant]
     Route: 048
     Dates: start: 19950101
  11. BROMOCRIPTINE MESYLATE [Concomitant]
     Route: 048
     Dates: start: 19940126

REACTIONS (13)
  - ANXIETY [None]
  - CRYING [None]
  - DYSPHONIA [None]
  - DYSPNOEA [None]
  - ERYTHEMA [None]
  - EYE DISORDER [None]
  - FACE OEDEMA [None]
  - MALAISE [None]
  - NASAL CONGESTION [None]
  - OCULAR VASCULAR DISORDER [None]
  - RHINORRHOEA [None]
  - THROAT TIGHTNESS [None]
  - UPPER RESPIRATORY TRACT CONGESTION [None]
